FAERS Safety Report 12790596 (Version 2)
Quarter: 2016Q4

REPORT INFORMATION
  Report Type: Spontaneous
  Country: US (occurrence: US)
  Receive Date: 20160929
  Receipt Date: 20161014
  Transmission Date: 20170207
  Serious: Yes (Hospitalization)
  Sender: FDA-Public Use
  Company Number: US-HORIZON-ACT-0228-2016

PATIENT
  Age: 9 Year
  Sex: Male

DRUGS (7)
  1. BACTRIM [Concomitant]
     Active Substance: SULFAMETHOXAZOLE\TRIMETHOPRIM
  2. ACTIMMUNE [Suspect]
     Active Substance: INTERFERON GAMMA-1B
     Indication: CHRONIC GRANULOMATOUS DISEASE
     Dosage: 0.2 ML TIW
     Dates: start: 20090608
  3. LEVAQUIN [Concomitant]
     Active Substance: LEVOFLOXACIN
  4. PREDNISONE. [Concomitant]
     Active Substance: PREDNISONE
  5. IMMURAN [Concomitant]
  6. KCL [Concomitant]
     Active Substance: POTASSIUM CHLORIDE
  7. AMBISOME [Concomitant]
     Active Substance: AMPHOTERICIN B
     Route: 042

REACTIONS (3)
  - Lung infection [Recovering/Resolving]
  - Infection [Recovering/Resolving]
  - Pulmonary granuloma [Recovering/Resolving]

NARRATIVE: CASE EVENT DATE: 20160919
